FAERS Safety Report 7006306-4 (Version None)
Quarter: 2010Q3

REPORT INFORMATION
  Report Type: 
  Country: None (occurrence: None)
  Receive Date: 20100921
  Receipt Date: 20100908
  Transmission Date: 20110219
  Serious: No
  Sender: FDA-Public Use
  Company Number: US-PFIZER INC-2010099502

PATIENT
  Sex: Female

DRUGS (2)
  1. LYRICA [Suspect]
     Indication: PAIN IN EXTREMITY
     Dosage: 75 MG, DAILY
     Route: 048
     Dates: start: 20100730
  2. LYRICA [Suspect]
     Indication: NECK PAIN

REACTIONS (1)
  - DYSGEUSIA [None]
